FAERS Safety Report 10490230 (Version 1)
Quarter: 2014Q4

REPORT INFORMATION
  Report Type: Spontaneous
  Country: US (occurrence: US)
  Receive Date: 20141002
  Receipt Date: 20141002
  Transmission Date: 20150528
  Serious: No
  Sender: FDA-Public Use
  Company Number: US-009507513-1409USA014156

PATIENT
  Age: 55 Year
  Sex: Male

DRUGS (4)
  1. ISENTRESS [Suspect]
     Active Substance: RALTEGRAVIR POTASSIUM
     Indication: HIV INFECTION
     Dosage: STRENGTH: 400 (UNITS NOT PROVIDED, DEFAULTED TO: MG), FREQUENCY: BD
     Route: 048
  2. 3TC [Concomitant]
     Active Substance: LAMIVUDINE
     Dosage: UNK
  3. AZT [Concomitant]
     Active Substance: ZIDOVUDINE
     Dosage: UNK
  4. ETR [Concomitant]
     Dosage: UNK

REACTIONS (2)
  - Fatigue [Not Recovered/Not Resolved]
  - Lipodystrophy acquired [Not Recovered/Not Resolved]
